FAERS Safety Report 5118963-8 (Version None)
Quarter: 2006Q3

REPORT INFORMATION
  Report Type: 
  Country: None (occurrence: None)
  Receive Date: 20060925
  Receipt Date: 20060914
  Transmission Date: 20061208
  Serious: Yes (Other)
  Sender: FDA-Public Use
  Company Number: HQWYE651717AUG06

PATIENT
  Age: 77 Year
  Sex: Male

DRUGS (1)
  1. BENEFIX [Suspect]
     Indication: FACTOR IX DEFICIENCY

REACTIONS (3)
  - ANGINA PECTORIS [None]
  - EYE OPERATION [None]
  - POST PROCEDURAL COMPLICATION [None]
